FAERS Safety Report 8903851 (Version 1)
Quarter: 2012Q4

REPORT INFORMATION
  Report Type: 
  Country: US (occurrence: US)
  Receive Date: 20121113
  Receipt Date: 20121113
  Transmission Date: 20130627
  Serious: Yes (Other)
  Sender: FDA-Public Use
  Company Number: US-VERTEX PHARMACEUTICAL INC.-2012-024458

PATIENT
  Age: 63 Year
  Sex: Male
  Weight: 99.77 kg

DRUGS (8)
  1. VX-950 [Suspect]
     Indication: HEPATITIS C
     Dosage: 750 mg, tid
     Route: 048
  2. RIBAPAK [Suspect]
     Indication: HEPATITIS C
     Dosage: 600 mg, qd
     Route: 048
  3. PEGASYS [Suspect]
     Indication: HEPATITIS C
     Dosage: 180 ?g, UNK
     Route: 058
  4. VITAMIN D3 [Concomitant]
     Dosage: 1000 UNK, UNK
     Route: 048
  5. PRAVASTATIN [Concomitant]
     Dosage: 10 mg, UNK
     Route: 048
  6. ZYRTEC [Concomitant]
     Dosage: 5 mg, UNK
     Route: 048
  7. FISH OIL [Concomitant]
     Route: 048
  8. ALEVE [Concomitant]

REACTIONS (1)
  - Eye haemorrhage [Unknown]
